FAERS Safety Report 4508974-5 (Version None)
Quarter: 2004Q4

REPORT INFORMATION
  Report Type: 
  Country: None (occurrence: None)
  Receive Date: 20041122
  Receipt Date: 20041122
  Transmission Date: 20050328
  Serious: Yes (Death, Disabling)
  Sender: FDA-Public Use
  Company Number: None

PATIENT
  Age: 74 Year
  Sex: Male

DRUGS (1)
  1. RETAVASE 10 MG [Suspect]
     Indication: ACUTE MYOCARDIAL INFARCTION
     Dosage: 10 MG IV
     Route: 042
     Dates: start: 20041015, end: 20041015

REACTIONS (2)
  - HEMIPARESIS [None]
  - MENTAL STATUS CHANGES [None]
